FAERS Safety Report 9050557 (Version 2)
Quarter: 2013Q1

REPORT INFORMATION
  Report Type: Spontaneous
  Country: US (occurrence: US)
  Receive Date: 20130205
  Receipt Date: 20130206
  Transmission Date: 20140127
  Serious: Yes (Life-Threatening)
  Sender: FDA-Public Use
  Company Number: US-MERCK-1302USA000406

PATIENT
  Age: 25 None
  Sex: Male

DRUGS (4)
  1. SAPHRIS [Suspect]
     Indication: AFFECTIVE DISORDER
     Dosage: 1 DF, ONCE
     Dates: start: 20130130, end: 20130130
  2. SAPHRIS [Suspect]
     Indication: INSOMNIA
  3. TRILEPTAL [Concomitant]
  4. LAMICTAL [Concomitant]

REACTIONS (1)
  - Anaphylactic reaction [Recovered/Resolved]
